FAERS Safety Report 9342409 (Version 1)
Quarter: 2013Q2

REPORT INFORMATION
  Report Type: Report from Study
  Country: US (occurrence: US)
  Receive Date: 20130611
  Receipt Date: 20130611
  Transmission Date: 20140414
  Serious: Yes (Life-Threatening)
  Sender: FDA-Public Use
  Company Number: US-MERCK-1306USA003876

PATIENT
  Age: 43 Year
  Sex: Male
  Weight: 114 kg

DRUGS (8)
  1. CYTARABINE [Suspect]
     Indication: ACUTE MYELOID LEUKAEMIA
     Dosage: 500 MG, (3X/DAY) PO ON DAYS 1-3 (DAILY DOSE= 1500MG)
     Route: 048
     Dates: start: 20130521, end: 20130523
  2. DAUNORUBICIN HYDROCHLORIDE [Suspect]
     Indication: ACUTE MYELOID LEUKAEMIA
     Dosage: 500 MG, (3X/DAY) PO ON DAYS 1-3 (DAILY DOSE= 1500MG)
     Route: 048
     Dates: start: 20130521, end: 20130523
  3. IDARUBICIN [Suspect]
     Indication: ACUTE MYELOID LEUKAEMIA
     Dosage: 500 MG, (3X/DAY) PO ON DAYS 1-3 (DAILY DOSE= 1500MG)
     Route: 048
     Dates: start: 20130521, end: 20130523
  4. BLINDED POST TRIAL THERAPY [Suspect]
     Indication: ACUTE MYELOID LEUKAEMIA
     Dosage: 500 MG, (3X/DAY) PO ON DAYS 1-3 (DAILY DOSE= 1500MG)
     Route: 048
     Dates: start: 20130521, end: 20130523
  5. BLINDED PRE TRIAL THERAPY [Suspect]
     Indication: ACUTE MYELOID LEUKAEMIA
     Dosage: 500 MG, (3X/DAY) PO ON DAYS 1-3 (DAILY DOSE= 1500MG)
     Route: 048
     Dates: start: 20130521, end: 20130523
  6. BLINDED VORINOSTAT [Suspect]
     Indication: ACUTE MYELOID LEUKAEMIA
     Dosage: 500 MG, (3X/DAY) PO ON DAYS 1-3 (DAILY DOSE= 1500MG)
     Route: 048
     Dates: start: 20130521, end: 20130523
  7. IDARUBICIN [Suspect]
     Indication: ACUTE MYELOID LEUKAEMIA
     Dosage: 12MG/M2/DAY IV OVER 15 MIN ON DAYS 4-6
     Route: 042
     Dates: start: 20130524, end: 20130526
  8. CYTARABINE [Suspect]
     Indication: ACUTE MYELOID LEUKAEMIA
     Dosage: 1500MG/M2/DAY CONTINUOUS IV INFUSION ON DAYS 4-7
     Route: 042
     Dates: start: 20130524, end: 20130527

REACTIONS (1)
  - Blood bilirubin increased [Unknown]
